FAERS Safety Report 4400803-3 (Version None)
Quarter: 2004Q3

REPORT INFORMATION
  Report Type: 
  Country: None (occurrence: None)
  Receive Date: 20040907
  Receipt Date: 20030616
  Transmission Date: 20050211
  Serious: No
  Sender: FDA-Public Use
  Company Number: US-BRISTOL-MYERS SQUIBB COMPANY-12302428

PATIENT
  Age: 49 Year
  Sex: Male
  Weight: 88 kg

DRUGS (2)
  1. COUMADIN [Suspect]
     Indication: DEEP VEIN THROMBOSIS
     Route: 048
  2. DILANTIN [Concomitant]

REACTIONS (2)
  - DRY SKIN [None]
  - RASH MACULAR [None]
